FAERS Safety Report 9181352 (Version 2)
Quarter: 2013Q2

REPORT INFORMATION
  Report Type: Spontaneous
  Country: US (occurrence: None)
  Receive Date: 20130320
  Receipt Date: 20130405
  Transmission Date: 20140414
  Serious: Yes (Death)
  Sender: FDA-Public Use
  Company Number: 2013CT000020

PATIENT
  Age: 39 Year
  Sex: Male
  Weight: 65.77 kg

DRUGS (1)
  1. KORLYM [Suspect]
     Indication: CUSHING^S SYNDROME
     Route: 048
     Dates: start: 201301, end: 20130228

REACTIONS (1)
  - Neuroendocrine carcinoma [None]
